FAERS Safety Report 9925078 (Version 2)
Quarter: 2014Q1

REPORT INFORMATION
  Report Type: Report from Study
  Country: CO (occurrence: CO)
  Receive Date: 20140226
  Receipt Date: 20140304
  Transmission Date: 20141002
  Serious: Yes (Hospitalization)
  Sender: FDA-Public Use
  Company Number: CO-ASTRAZENECA-2014SE11855

PATIENT
  Sex: Female

DRUGS (6)
  1. BRILINTA [Suspect]
     Indication: INFARCTION
     Route: 048
     Dates: start: 20131216, end: 20140210
  2. BRILINTA [Suspect]
     Indication: INFARCTION
     Route: 048
  3. ASA [Concomitant]
  4. RANITIDINE [Concomitant]
  5. LOSARTAN [Concomitant]
  6. ATORVASTATIN [Concomitant]

REACTIONS (2)
  - Device occlusion [Recovered/Resolved]
  - Chest pain [Recovered/Resolved]
